FAERS Safety Report 5238952-2 (Version None)
Quarter: 2007Q1

REPORT INFORMATION
  Report Type: 
  Country: None (occurrence: None)
  Receive Date: 20070209
  Receipt Date: 20070131
  Transmission Date: 20070707
  Serious: Yes (Other)
  Sender: FDA-Public Use
  Company Number: FABR-11841

PATIENT
  Age: 47 Year
  Sex: Female
  Weight: 92.6 kg

DRUGS (8)
  1. FABRAZYME [Suspect]
     Indication: FABRY'S DISEASE
     Dosage: 1 MG/KG Q2WKS IV
     Route: 042
     Dates: start: 20050603
  2. NEURONTIN [Concomitant]
  3. DEPAKOTE [Concomitant]
  4. VICODIN [Concomitant]
  5. MEVACOR [Concomitant]
  6. PAXIL [Concomitant]
  7. HYDROCHLOROTHIAZIDE [Concomitant]
  8. ATIVAN [Concomitant]

REACTIONS (9)
  - BLOOD CREATININE INCREASED [None]
  - BLOOD UREA INCREASED [None]
  - CHEST DISCOMFORT [None]
  - DYSPNOEA EXERTIONAL [None]
  - IRON DEFICIENCY ANAEMIA [None]
  - OEDEMA PERIPHERAL [None]
  - ORTHOPNOEA [None]
  - PULMONARY FUNCTION TEST ABNORMAL [None]
  - VITAMIN B12 DECREASED [None]
